FAERS Safety Report 18942598 (Version 1)
Quarter: 2021Q1

REPORT INFORMATION
  Report Type: Not Available
  Country: US (occurrence: US)
  Receive Date: 20210225
  Receipt Date: 20210225
  Transmission Date: 20210420
  Serious: Yes (Other)
  Sender: FDA-Public Use
  Company Number: US-NEUROCRINE BIOSCIENCES INC.-2021NBI00856

PATIENT
  Age: 81 Year
  Sex: Male

DRUGS (5)
  1. GLUCOSAMINE [Concomitant]
     Active Substance: GLUCOSAMINE
  2. FINASTERIDE. [Concomitant]
     Active Substance: FINASTERIDE
  3. CARBIDOPA/LEVODPA [Concomitant]
  4. ARICEPT [Concomitant]
     Active Substance: DONEPEZIL HYDROCHLORIDE
  5. ONGENTYS [Suspect]
     Active Substance: OPICAPONE
     Indication: PARKINSON^S DISEASE
     Route: 048

REACTIONS (1)
  - Hallucination [Unknown]
